FAERS Safety Report 5466466-3 (Version None)
Quarter: 2007Q3

REPORT INFORMATION
  Report Type: 
  Country: None (occurrence: None)
  Receive Date: 20070820
  Receipt Date: 20070604
  Transmission Date: 20080115
  Serious: No
  Sender: FDA-Public Use
  Company Number: WAES 0706USA00570

PATIENT
  Age: 75 Year
  Sex: Female
  Weight: 67.586 kg

DRUGS (5)
  1. JANUVIA [Suspect]
     Indication: TYPE 2 DIABETES MELLITUS
     Dosage: 100 MG/DAILY/PO
     Route: 048
     Dates: start: 20070419, end: 20070510
  2. ACIPHEX [Concomitant]
  3. ATACAND [Concomitant]
  4. ZANTAC [Concomitant]
  5. [THERAPY UNSPECIFIED] [Concomitant]

REACTIONS (2)
  - ABNORMAL DREAMS [None]
  - HALLUCINATION [None]
